FAERS Safety Report 12866061 (Version 1)
Quarter: 2016Q4

REPORT INFORMATION
  Report Type: Spontaneous
  Country: GB (occurrence: GB)
  Receive Date: 20161020
  Receipt Date: 20161020
  Transmission Date: 20170207
  Serious: Yes (Hospitalization)
  Sender: FDA-Public Use
  Company Number: GB-GLAXOSMITHKLINE-GB2016151372

PATIENT
  Age: 38 Year
  Sex: Female
  Weight: 70 kg

DRUGS (16)
  1. NAPROXEN. [Concomitant]
     Active Substance: NAPROXEN
     Dosage: 1 DF, BID
     Dates: start: 20151019
  2. CITALOPRAM [Concomitant]
     Active Substance: CITALOPRAM HYDROBROMIDE
     Dosage: 1 DF, QD
     Dates: start: 20131206
  3. OMEPRAZOLE. [Concomitant]
     Active Substance: OMEPRAZOLE
     Dosage: 1 DF, QD
     Dates: start: 20131206
  4. BETNOVATE C [Concomitant]
     Dosage: 1 DF, QD
     Dates: start: 20160310
  5. CLOBETASONE BUTYRATE [Concomitant]
     Active Substance: CLOBETASONE BUTYRATE
     Dosage: 1 DF, BID
     Dates: start: 20161004
  6. PREDNISOLONE. [Concomitant]
     Active Substance: PREDNISOLONE
     Dosage: 6 DF, QD, FOR 5 DAYS.
     Dates: start: 20161005
  7. FOLIC ACID. [Concomitant]
     Active Substance: FOLIC ACID
     Dosage: 1 DF, QD
     Dates: start: 20160310
  8. TRAMADOL. [Concomitant]
     Active Substance: TRAMADOL
     Dosage: TAKE 1 OR 2 AS DIRECTED
     Dates: start: 20150129
  9. TERBINAFINE. [Suspect]
     Active Substance: TERBINAFINE
     Indication: PRODUCT USED FOR UNKNOWN INDICATION
     Dosage: UNK
     Route: 065
     Dates: start: 20161005
  10. CROTAMITON [Concomitant]
     Active Substance: CROTAMITON
     Dosage: USE AS DIRECTED
     Dates: start: 20161004
  11. E45 (LIGHT LIQUID PARAFFIN + WHITE SOFT PARAFFIN) [Concomitant]
     Dosage: 1 DF, UNK
     Dates: start: 20131206
  12. LORATADINE. [Concomitant]
     Active Substance: LORATADINE
     Dosage: 1 DF, QD
     Dates: start: 20141022
  13. PREGABALIN. [Concomitant]
     Active Substance: PREGABALIN
     Dosage: 1 DF, BID
     Dates: start: 20131206
  14. BUPRENORPHINE. [Concomitant]
     Active Substance: BUPRENORPHINE
     Dosage: AS DIRECTED WEEKLY
     Dates: start: 20161004
  15. CALCIPOTRIOL [Concomitant]
     Active Substance: CALCIPOTRIENE
     Dosage: 1 DF, QD
     Dates: start: 20140926
  16. DERMOL (BENZALKONIUM CHLORIDE + CHLORHEXIDINE HCL + LIQUID PARAFFIN + [Concomitant]
     Dosage: USE AS DIRECTED
     Dates: start: 20150521

REACTIONS (1)
  - Urticaria [Not Recovered/Not Resolved]

NARRATIVE: CASE EVENT DATE: 20161005
